FAERS Safety Report 24085283 (Version 1)
Quarter: 2024Q3

REPORT INFORMATION
  Report Type: Spontaneous
  Country: US (occurrence: US)
  Receive Date: 20240712
  Receipt Date: 20240712
  Transmission Date: 20241016
  Serious: Yes (Hospitalization, Other)
  Sender: FRESENIUS KABI
  Company Number: US-FreseniusKabi-FK202410875

PATIENT
  Age: 66 Year
  Sex: Female

DRUGS (5)
  1. ETOPOSIDE [Suspect]
     Active Substance: ETOPOSIDE
     Indication: Gestational trophoblastic tumour
     Dosage: EP- EMA (ETOPOSIDE, CISPLATIN, DAY 1; ETOPOSIDE, METHOTREXATE, ACTINOMYCIN-D, DAY 8, EVERY TWO WEEKS
  2. CISPLATIN [Suspect]
     Active Substance: CISPLATIN
     Indication: Gestational trophoblastic tumour
     Dosage: EP- EMA (ETOPOSIDE, CISPLATIN, DAY 1; ETOPOSIDE, METHOTREXATE, ACTINOMYCIN-D, DAY 8, EVERY TWO WEEKS
  3. METHOTREXATE [Suspect]
     Active Substance: METHOTREXATE
     Indication: Gestational trophoblastic tumour
     Dosage: EP- EMA (ETOPOSIDE, CISPLATIN, DAY 1; ETOPOSIDE, METHOTREXATE, ACTINOMYCIN-D, DAY 8, EVERY TWO WEEKS
  4. ETOPOSIDE PHOSPHATE [Suspect]
     Active Substance: ETOPOSIDE PHOSPHATE
     Indication: Gestational trophoblastic tumour
     Dosage: EP- EMA (ETOPOSIDE, CISPLATIN, DAY 1; ETOPOSIDE, METHOTREXATE, ACTINOMYCIN-D, DAY 8, EVERY TWO WEEKS
  5. ACTINOMYCIN D [Suspect]
     Active Substance: DACTINOMYCIN
     Indication: Gestational trophoblastic tumour
     Dosage: EP- EMA (ETOPOSIDE, CISPLATIN, DAY 1; ETOPOSIDE, METHOTREXATE, ACTINOMYCIN-D, DAY 8, EVERY TWO WEEKS

REACTIONS (6)
  - Angioedema [Recovered/Resolved]
  - Neutropenia [Recovered/Resolved]
  - Stomatitis [Recovered/Resolved]
  - Sepsis [Recovered/Resolved]
  - Thrombocytopenia [Recovered/Resolved]
  - Anaemia [Recovered/Resolved]
